FAERS Safety Report 20778908 (Version 3)
Quarter: 2022Q2

REPORT INFORMATION
  Report Type: Spontaneous
  Country: US (occurrence: US)
  Receive Date: 20220503
  Receipt Date: 20220506
  Transmission Date: 20220721
  Serious: Yes (Life-Threatening, Other)
  Sender: FDA-Public Use
  Company Number: US-sptaiwan-2022SUN001406

PATIENT
  Age: 44 Year
  Sex: Male
  Weight: 108.9 kg

DRUGS (8)
  1. LATUDA [Suspect]
     Active Substance: LURASIDONE HYDROCHLORIDE
     Indication: Product used for unknown indication
     Dosage: UNK
     Route: 048
  2. REXULTI [Suspect]
     Active Substance: BREXPIPRAZOLE
     Indication: Bipolar disorder
     Dosage: 3 MG, NIGHTLY
     Route: 048
  3. REXULTI [Suspect]
     Active Substance: BREXPIPRAZOLE
     Indication: Affective disorder
  4. TRINTELLIX [Concomitant]
     Active Substance: VORTIOXETINE HYDROBROMIDE
  5. LYRICA [Concomitant]
     Active Substance: PREGABALIN
  6. CLONIDINE [Concomitant]
     Active Substance: CLONIDINE
  7. FIORICET [Concomitant]
     Active Substance: ACETAMINOPHEN\BUTALBITAL\CAFFEINE
  8. LAMICTAL [Concomitant]
     Active Substance: LAMOTRIGINE

REACTIONS (9)
  - Suicidal ideation [Not Recovered/Not Resolved]
  - Withdrawal syndrome [Not Recovered/Not Resolved]
  - Depressed mood [Not Recovered/Not Resolved]
  - Palpitations [Unknown]
  - Cough [Not Recovered/Not Resolved]
  - Panic attack [Unknown]
  - Fatigue [Not Recovered/Not Resolved]
  - Anxiety [Unknown]
  - Tremor [Unknown]

NARRATIVE: CASE EVENT DATE: 20220404
